FAERS Safety Report 6591270-2 (Version None)
Quarter: 2010Q1

REPORT INFORMATION
  Report Type: 
  Country: None (occurrence: None)
  Receive Date: 20100219
  Receipt Date: 20100212
  Transmission Date: 20100710
  Serious: Yes (Hospitalization)
  Sender: FDA-Public Use
  Company Number: FR-TEVA-224199ISR

PATIENT
  Sex: Female

DRUGS (4)
  1. CARBOPLATIN [Suspect]
     Indication: OVARIAN CANCER
     Route: 042
     Dates: start: 20100210, end: 20100210
  2. PACLITAXEL [Concomitant]
     Indication: OVARIAN CANCER
     Route: 042
     Dates: start: 20100209, end: 20100209
  3. METHYLPREDNISOLONE [Concomitant]
     Indication: PREMEDICATION
     Dates: start: 20100210, end: 20100210
  4. ONDANSETRON [Concomitant]
     Indication: PREMEDICATION
     Dates: start: 20100210, end: 20100210

REACTIONS (3)
  - HYPOTENSION [None]
  - LOSS OF CONSCIOUSNESS [None]
  - VOMITING [None]
